FAERS Safety Report 6332503-7 (Version None)
Quarter: 2009Q3

REPORT INFORMATION
  Report Type: 
  Country: None (occurrence: None)
  Receive Date: 20090828
  Receipt Date: 20081024
  Transmission Date: 20100115
  Serious: No
  Sender: FDA-Public Use
  Company Number: A0753663A

PATIENT
  Age: 34 Year
  Sex: Male

DRUGS (1)
  1. MALARONE [Suspect]
     Indication: MALARIA
     Dosage: 1TAB PER DAY
     Route: 048
     Dates: start: 20081023

REACTIONS (2)
  - MIGRAINE [None]
  - VOMITING [None]
